FAERS Safety Report 15541527 (Version 1)
Quarter: 2018Q4

REPORT INFORMATION
  Report Type: Spontaneous
  Country: US (occurrence: US)
  Receive Date: 20181017
  Receipt Date: 20181017
  Transmission Date: 20190205
  Serious: No
  Sender: FDA-Public Use
  Company Number: None

PATIENT
  Age: 46 Year
  Sex: Female
  Weight: 71.7 kg

DRUGS (3)
  1. DAUNORUBICIN [Suspect]
     Active Substance: DAUNORUBICIN
     Dates: end: 20181001
  2. VINCRISTINE SULFATE. [Suspect]
     Active Substance: VINCRISTINE SULFATE
     Dates: end: 20181001
  3. DEXAMETHASONE. [Suspect]
     Active Substance: DEXAMETHASONE
     Dates: end: 20180930

REACTIONS (8)
  - Nausea [None]
  - Hepatic steatosis [None]
  - Constipation [None]
  - Alanine aminotransferase increased [None]
  - Impaired gastric emptying [None]
  - Drug-induced liver injury [None]
  - Hyperbilirubinaemia [None]
  - Abdominal pain [None]

NARRATIVE: CASE EVENT DATE: 20181011
